FAERS Safety Report 4510171-4 (Version None)
Quarter: 2004Q4

REPORT INFORMATION
  Report Type: 
  Country: None (occurrence: None)
  Receive Date: 20041119
  Receipt Date: 20041110
  Transmission Date: 20050328
  Serious: Yes (Life-Threatening, Hospitalization, Disabling)
  Sender: FDA-Public Use
  Company Number: DE-2004-033779

PATIENT
  Age: 44 Year
  Sex: Male
  Weight: 104 kg

DRUGS (9)
  1. MAGNEVIST [Suspect]
     Indication: NUCLEAR MAGNETIC RESONANCE IMAGING
     Dosage: 33 ML, 1 DOSE, INTRAVENOUS
     Route: 042
     Dates: start: 20040909, end: 20040909
  2. FUROSEMIDE [Concomitant]
  3. CARDULAR PP (DOXAZOSIN MESILATE) [Concomitant]
  4. NORVASC  /DEN (AMLODIPINE BESILATE) [Concomitant]
  5. BELOC ZOK (METOPROLOL SUCCINATE0 [Concomitant]
  6. LEVOTHYROXINE SODIUM [Concomitant]
  7. FERRO-SANOL DUODENAL (FERROUS SULFATE) [Concomitant]
  8. NEORECORMON (EPOETIN BETA) [Concomitant]
  9. CALCIUM CARBONATE [Concomitant]

REACTIONS (5)
  - DIALYSIS [None]
  - PULMONARY OEDEMA [None]
  - RENAL FAILURE ACUTE [None]
  - RENAL FAILURE CHRONIC [None]
  - WEIGHT INCREASED [None]
